FAERS Safety Report 7998486-9 (Version None)
Quarter: 2011Q4

REPORT INFORMATION
  Report Type: 
  Country: None (occurrence: None)
  Receive Date: 20111221
  Receipt Date: 20111212
  Transmission Date: 20120403
  Serious: Yes (Hospitalization, Other)
  Sender: FDA-Public Use
  Company Number: GB-ELI_LILLY_AND_COMPANY-GB201112003822

PATIENT
  Age: 61 Year
  Sex: Female

DRUGS (6)
  1. FLUOXETINE [Suspect]
     Dosage: 20 MG, QD
     Route: 065
  2. MEBEVERINE [Concomitant]
     Dosage: 200 MG, QD
  3. RAMIPRIL [Concomitant]
     Dosage: 5 MG, QD
  4. OMEPRAZOLE [Concomitant]
     Dosage: 20 MG, QD
  5. BENDROFLUMETHIAZIDE [Concomitant]
     Indication: DIURETIC THERAPY
     Dosage: 2.5 MG, QD
  6. ROSUVASTATIN [Concomitant]
     Dosage: 20 MG, QD

REACTIONS (4)
  - INAPPROPRIATE ANTIDIURETIC HORMONE SECRETION [None]
  - HYPOKALAEMIA [None]
  - PYREXIA [None]
  - DIARRHOEA [None]
